APPROVED DRUG PRODUCT: AMMONIUM CHLORIDE 0.9% IN NORMAL SALINE
Active Ingredient: AMMONIUM CHLORIDE
Strength: 900MG/100ML
Dosage Form/Route: INJECTABLE;INJECTION
Application: N006580 | Product #001
Applicant: MCGAW INC
Approved: Approved Prior to Jan 1, 1982 | RLD: No | RS: No | Type: DISCN